FAERS Safety Report 15072622 (Version 2)
Quarter: 2018Q2

REPORT INFORMATION
  Report Type: Report from Study
  Country: US (occurrence: US)
  Receive Date: 20180627
  Receipt Date: 20180629
  Transmission Date: 20180711
  Serious: Yes (Death, Other)
  Sender: FDA-Public Use
  Company Number: US-BEH-2018092172

PATIENT
  Age: 60 Year
  Sex: Male
  Weight: 126.8 kg

DRUGS (19)
  1. BENAZEPRIL AND HYDROCHLOROTHIAZIDE [Concomitant]
     Active Substance: BENAZEPRIL HYDROCHLORIDE\HYDROCHLOROTHIAZIDE
  2. LEXAPRO [Concomitant]
     Active Substance: ESCITALOPRAM OXALATE
  3. SODIUM CHLORIDE. [Concomitant]
     Active Substance: SODIUM CHLORIDE
  4. REQUIP [Concomitant]
     Active Substance: ROPINIROLE HYDROCHLORIDE
  5. LORAZEPAM. [Concomitant]
     Active Substance: LORAZEPAM
  6. VENTOLIN [Concomitant]
     Active Substance: ALBUTEROL SULFATE
  7. LEVOFLOXACIN. [Concomitant]
     Active Substance: LEVOFLOXACIN
  8. CARBIDOPA-LEVODOPA-B [Concomitant]
     Active Substance: CARBIDOPA\LEVODOPA
  9. DIPHENHYDRAMINE. [Concomitant]
     Active Substance: DIPHENHYDRAMINE
  10. EPINEPHRINE. [Concomitant]
     Active Substance: EPINEPHRINE
  11. TAMSULOSIN [Concomitant]
     Active Substance: TAMSULOSIN
  12. OXYGEN. [Concomitant]
     Active Substance: OXYGEN
  13. CITALOPRAM [Concomitant]
     Active Substance: CITALOPRAM HYDROBROMIDE
  14. COMTAN [Concomitant]
     Active Substance: ENTACAPONE
  15. ZEMAIRA [Suspect]
     Active Substance: .ALPHA.1-PROTEINASE INHIBITOR HUMAN
     Indication: ALPHA-1 ANTI-TRYPSIN DEFICIENCY
     Dosage: UNK
     Route: 042
  16. LMX                                /00033401/ [Concomitant]
  17. FLOVENT [Concomitant]
     Active Substance: FLUTICASONE PROPIONATE
  18. PROAIR HFA [Concomitant]
     Active Substance: ALBUTEROL SULFATE
  19. ZEMAIRA [Suspect]
     Active Substance: .ALPHA.1-PROTEINASE INHIBITOR HUMAN
     Dosage: 60 MG/KG, QW
     Route: 042
     Dates: start: 20090313, end: 20180623

REACTIONS (3)
  - Fall [Unknown]
  - Head injury [Unknown]
  - Death [Fatal]

NARRATIVE: CASE EVENT DATE: 20180624
